FAERS Safety Report 8494524-8 (Version None)
Quarter: 2012Q3

REPORT INFORMATION
  Report Type: 
  Country: None (occurrence: None)
  Receive Date: 20120709
  Receipt Date: 20120628
  Transmission Date: 20120928
  Serious: No
  Sender: FDA-Public Use
  Company Number: GB-SANOFI-AVENTIS-2012SA046374

PATIENT

DRUGS (1)
  1. MULTAQ [Suspect]
     Route: 048

REACTIONS (1)
  - BLOOD CREATININE INCREASED [None]
